FAERS Safety Report 7128170-5 (Version None)
Quarter: 2010Q4

REPORT INFORMATION
  Report Type: 
  Country: None (occurrence: None)
  Receive Date: 20101130
  Receipt Date: 20101117
  Transmission Date: 20110411
  Serious: Yes (Other)
  Sender: FDA-Public Use
  Company Number: PHHY2010US44342

PATIENT
  Sex: Male

DRUGS (2)
  1. GLEEVEC [Suspect]
     Indication: NEOPLASM MALIGNANT
     Dosage: 400 MG, QD
     Route: 048
  2. GLEEVEC [Suspect]
     Dosage: UNK

REACTIONS (4)
  - EYE DISORDER [None]
  - GASTRIC FISTULA [None]
  - MUSCULOSKELETAL PAIN [None]
  - SHOULDER OPERATION [None]
